FAERS Safety Report 4674181-9 (Version None)
Quarter: 2005Q2

REPORT INFORMATION
  Report Type: 
  Country: None (occurrence: None)
  Receive Date: 20050524
  Receipt Date: 20050513
  Transmission Date: 20051028
  Serious: Yes (Other)
  Sender: FDA-Public Use
  Company Number: US015295

PATIENT
  Age: 44 Year
  Sex: Female

DRUGS (1)
  1. GABITRIL [Suspect]
     Dosage: 12 MG UNK ORAL
     Route: 048

REACTIONS (1)
  - CONVULSION [None]
